FAERS Safety Report 16972051 (Version 1)
Quarter: 2019Q4

REPORT INFORMATION
  Report Type: Spontaneous
  Country: US (occurrence: US)
  Receive Date: 20191029
  Receipt Date: 20191029
  Transmission Date: 20200122
  Serious: No
  Sender: FDA-Public Use
  Company Number: US-AKRON, INC.-2076150

PATIENT
  Sex: Female

DRUGS (1)
  1. BETIMOL [Suspect]
     Active Substance: TIMOLOL
     Route: 047

REACTIONS (6)
  - Eye pain [Unknown]
  - Blepharitis [Unknown]
  - Eyelid skin dryness [Unknown]
  - Ocular discomfort [Unknown]
  - Apraxia [Unknown]
  - Eye pruritus [Unknown]
